FAERS Safety Report 7560649-4 (Version None)
Quarter: 2011Q2

REPORT INFORMATION
  Report Type: 
  Country: None (occurrence: None)
  Receive Date: 20110621
  Receipt Date: 20110614
  Transmission Date: 20111010
  Serious: Yes (Life-Threatening, Hospitalization)
  Sender: FDA-Public Use
  Company Number: AT-BRISTOL-MYERS SQUIBB COMPANY-13032669

PATIENT
  Age: 77 Year
  Sex: Male

DRUGS (13)
  1. DALTEPARIN SODIUM [Concomitant]
     Indication: PROPHYLAXIS
     Route: 058
     Dates: start: 20050705, end: 20050713
  2. HYDROCHLOROTHIAZIDE [Concomitant]
     Route: 048
     Dates: start: 20040701
  3. METFORMIN HCL [Concomitant]
     Route: 048
     Dates: start: 19950101
  4. DOXAZOSIN MESYLATE [Concomitant]
     Indication: PROPHYLAXIS
     Route: 048
     Dates: start: 20020701
  5. BISOPROLOL FUMARATE [Concomitant]
     Route: 048
     Dates: start: 20040815
  6. LANSOPRAZOLE [Concomitant]
     Indication: PROPHYLAXIS
     Route: 048
     Dates: start: 20020701
  7. CETUXIMAB [Suspect]
     Indication: COLORECTAL CANCER METASTATIC
     Dosage: DOSE: 400 MG/M2-15 MINS INTO INFUSION, EVENT OCCURRED. ACTUAL DOSE ADM NOT REPORTED.
     Route: 041
     Dates: start: 20050705, end: 20050705
  8. IRINOTECAN HYDROCHLORIDE [Suspect]
     Indication: COLORECTAL CANCER METASTATIC
     Route: 042
     Dates: start: 20050727, end: 20050727
  9. LISINOPRIL [Concomitant]
     Route: 048
     Dates: start: 20040701
  10. CALCIUM DOBESILATE [Concomitant]
     Route: 048
     Dates: start: 20040701
  11. LEUCOVORIN CALCIUM [Suspect]
     Indication: COLORECTAL CANCER METASTATIC
     Route: 042
     Dates: start: 20050727, end: 20050727
  12. FLUOROURACIL [Suspect]
     Indication: COLORECTAL CANCER METASTATIC
     Route: 042
     Dates: start: 20050727, end: 20050727
  13. INSULIN [Concomitant]
     Route: 058
     Dates: start: 20020301

REACTIONS (2)
  - SHOCK [None]
  - PNEUMONIA [None]
